FAERS Safety Report 8489175-5 (Version None)
Quarter: 2012Q3

REPORT INFORMATION
  Report Type: 
  Country: None (occurrence: None)
  Receive Date: 20120705
  Receipt Date: 20120626
  Transmission Date: 20120928
  Serious: No
  Sender: FDA-Public Use
  Company Number: JP-AMGEN-JPNCT2012022044

PATIENT
  Age: 62 Year
  Sex: Male
  Weight: 56 kg

DRUGS (6)
  1. FLUOROURACIL [Concomitant]
     Route: 041
     Dates: start: 20120229
  2. LEUCOVORIN CALCIUM [Concomitant]
     Indication: COLORECTAL CANCER
     Route: 041
     Dates: start: 20120229
  3. IRINOTECAN HYDROCHLORIDE [Concomitant]
     Indication: COLORECTAL CANCER
     Dosage: 240 MG, Q2WK
     Route: 041
     Dates: start: 20120229
  4. ALOXI [Concomitant]
     Dosage: 0.75 MG, Q2WK
     Route: 041
     Dates: start: 20120215
  5. PANITUMUMAB [Suspect]
     Indication: COLORECTAL CANCER
     Dosage: 6 MG, Q2WK
     Route: 041
     Dates: start: 20120229
  6. FLUOROURACIL [Concomitant]
     Indication: COLORECTAL CANCER
     Route: 040
     Dates: start: 20120229

REACTIONS (1)
  - TONGUE PIGMENTATION [None]
